FAERS Safety Report 16854445 (Version 1)
Quarter: 2019Q3

REPORT INFORMATION
  Report Type: Spontaneous
  Country: CA (occurrence: CA)
  Receive Date: 20190926
  Receipt Date: 20190926
  Transmission Date: 20191005
  Serious: Yes (Life-Threatening, Other)
  Sender: FDA-Public Use
  Company Number: CA-TEVA-2019-CA-1113126

PATIENT
  Age: 37 Year
  Sex: Male
  Weight: 109 kg

DRUGS (14)
  1. VENLAFAXINE HYDROCHLORIDE. [Suspect]
     Active Substance: VENLAFAXINE HYDROCHLORIDE
     Dosage: 150 MILLIGRAM DAILY;
     Route: 048
  2. FETZIMA [Suspect]
     Active Substance: LEVOMILNACIPRAN HYDROCHLORIDE
     Dosage: 80 MILLIGRAM DAILY;
     Route: 048
  3. FETZIMA [Suspect]
     Active Substance: LEVOMILNACIPRAN HYDROCHLORIDE
     Dosage: 100 MILLIGRAM DAILY;
     Route: 048
  4. VENLAFAXINE HYDROCHLORIDE. [Suspect]
     Active Substance: VENLAFAXINE HYDROCHLORIDE
     Dosage: 150 MILLIGRAM DAILY;
     Route: 048
  5. SAPHRIS [Concomitant]
     Active Substance: ASENAPINE MALEATE
     Indication: MAJOR DEPRESSION
     Dosage: 10 MILLIGRAM DAILY;
     Route: 060
  6. FETZIMA [Suspect]
     Active Substance: LEVOMILNACIPRAN HYDROCHLORIDE
     Dosage: 60 MILLIGRAM DAILY;
     Route: 048
  7. FETZIMA [Suspect]
     Active Substance: LEVOMILNACIPRAN HYDROCHLORIDE
     Indication: MAJOR DEPRESSION
     Dosage: 80 MILLIGRAM DAILY;
     Route: 048
  8. QUETIAPINE. [Concomitant]
     Active Substance: QUETIAPINE
     Indication: AGITATION
     Route: 065
  9. FETZIMA [Suspect]
     Active Substance: LEVOMILNACIPRAN HYDROCHLORIDE
     Dosage: 20 MILLIGRAM DAILY;
     Route: 048
  10. FETZIMA [Suspect]
     Active Substance: LEVOMILNACIPRAN HYDROCHLORIDE
     Dosage: 40 MILLIGRAM DAILY;
     Route: 048
  11. LYRICA [Concomitant]
     Active Substance: PREGABALIN
     Indication: MAJOR DEPRESSION
     Dosage: 75 MILLIGRAM DAILY;
     Route: 048
  12. VENLAFAXINE HYDROCHLORIDE. [Suspect]
     Active Substance: VENLAFAXINE HYDROCHLORIDE
     Indication: MAJOR DEPRESSION
     Dosage: 112.5 MILLIGRAM DAILY;
     Route: 048
  13. VENLAFAXINE HYDROCHLORIDE. [Suspect]
     Active Substance: VENLAFAXINE HYDROCHLORIDE
     Dosage: 112.5 MILLIGRAM DAILY;
     Route: 048
  14. QUETIAPINE. [Concomitant]
     Active Substance: QUETIAPINE
     Indication: MAJOR DEPRESSION
     Dosage: 100 MILLIGRAM DAILY;
     Route: 048

REACTIONS (3)
  - Suicidal ideation [Recovered/Resolved]
  - Agitation [Recovered/Resolved]
  - Suicidal behaviour [Recovered/Resolved]
